FAERS Safety Report 12223701 (Version 2)
Quarter: 2016Q2

REPORT INFORMATION
  Report Type: Report from Study
  Country: US (occurrence: US)
  Receive Date: 20160330
  Receipt Date: 20160411
  Transmission Date: 20160815
  Serious: Yes (Death, Hospitalization)
  Sender: FDA-Public Use
  Company Number: US-ACTELION-A-NJ2015-128885

PATIENT
  Age: 63 Year
  Sex: Female

DRUGS (2)
  1. VELETRI [Suspect]
     Active Substance: EPOPROSTENOL
     Indication: PULMONARY HYPERTENSION
     Dosage: 4.73 NG/KG, PER MIN
     Route: 042
     Dates: start: 20151207, end: 20160320
  2. WARFARIN [Concomitant]
     Active Substance: WARFARIN

REACTIONS (15)
  - Dyspnoea [Unknown]
  - Pain in jaw [Recovered/Resolved]
  - Dyspnoea exertional [Unknown]
  - Sluggishness [Unknown]
  - Blister [Unknown]
  - Insomnia [Unknown]
  - Malaise [Unknown]
  - Condition aggravated [Unknown]
  - Nausea [Unknown]
  - Decreased appetite [Unknown]
  - Weight decreased [Unknown]
  - Diarrhoea [Unknown]
  - Headache [Recovered/Resolved]
  - Pulmonary hypertension [Fatal]
  - Catheter site haemorrhage [Unknown]

NARRATIVE: CASE EVENT DATE: 20160320
